FAERS Safety Report 18361490 (Version 2)
Quarter: 2020Q4

REPORT INFORMATION
  Report Type: Spontaneous
  Country: US (occurrence: US)
  Receive Date: 20201008
  Receipt Date: 20201019
  Transmission Date: 20210114
  Serious: Yes (Other)
  Sender: FDA-Public Use
  Company Number: US-PFIZER INC-2019552517

PATIENT
  Sex: Male
  Weight: 58 kg

DRUGS (2)
  1. CELEBREX [Suspect]
     Active Substance: CELECOXIB
     Indication: MIGRAINE
  2. CELEBREX [Suspect]
     Active Substance: CELECOXIB
     Indication: INTERVERTEBRAL DISC DISORDER
     Dosage: UNK, (NO MORE THAN 2 DAILY TAKEN ) AS NEEDED
     Route: 048

REACTIONS (3)
  - Off label use [Unknown]
  - Hernia [Recovering/Resolving]
  - Product use in unapproved indication [Unknown]
